FAERS Safety Report 8430874-9 (Version None)
Quarter: 2012Q2

REPORT INFORMATION
  Report Type: 
  Country: None (occurrence: None)
  Receive Date: 20120612
  Receipt Date: 20120530
  Transmission Date: 20120825
  Serious: Yes (Hospitalization)
  Sender: FDA-Public Use
  Company Number: FR-MYLANLABS-2012S1010959

PATIENT
  Age: 73 Year
  Sex: Female

DRUGS (5)
  1. METHOTREXATE [Suspect]
     Indication: B-CELL LYMPHOMA
     Route: 042
     Dates: start: 20120512, end: 20120512
  2. RYTHMOL [Concomitant]
     Indication: ARRHYTHMIA
  3. PROCARBAZINE HYDROCHLORIDE [Concomitant]
  4. PREDNISONE TAB [Concomitant]
     Indication: RHEUMATIC FEVER
  5. VINCRISTINE [Concomitant]

REACTIONS (1)
  - ANGIOEDEMA [None]
